FAERS Safety Report 6110023-2 (Version None)
Quarter: 2009Q1

REPORT INFORMATION
  Report Type: 
  Country: None (occurrence: None)
  Receive Date: 20090310
  Receipt Date: 20081209
  Transmission Date: 20090719
  Serious: No
  Sender: FDA-Public Use
  Company Number: A0759576A

PATIENT
  Age: 66 Year
  Sex: Female

DRUGS (1)
  1. NICORETTE WHITE ICE OTC 2MG [Suspect]
     Dates: start: 20081118, end: 20081118

REACTIONS (3)
  - INTENTIONAL DRUG MISUSE [None]
  - MALAISE [None]
  - NAUSEA [None]
